FAERS Safety Report 5984153-X (Version None)
Quarter: 2008Q4

REPORT INFORMATION
  Report Type: 
  Country: None (occurrence: None)
  Receive Date: 20081205
  Receipt Date: 20081205
  Transmission Date: 20090506
  Serious: Yes (Hospitalization)
  Sender: FDA-Public Use
  Company Number: None

PATIENT
  Age: 75 Year
  Sex: Male
  Weight: 79.77 kg

DRUGS (1)
  1. CLOPIDOGREL [Suspect]
     Dosage: 75 MG EVERY DAY PO
     Route: 048
     Dates: start: 20080623, end: 20080625

REACTIONS (3)
  - GASTROINTESTINAL HAEMORRHAGE [None]
  - HAEMORRHAGE [None]
  - RECTAL HAEMORRHAGE [None]
